FAERS Safety Report 17669843 (Version 3)
Quarter: 2020Q2

REPORT INFORMATION
  Report Type: Spontaneous
  Country: JP (occurrence: JP)
  Receive Date: 20200415
  Receipt Date: 20200513
  Transmission Date: 20200713
  Serious: Yes (Hospitalization)
  Sender: FDA-Public Use
  Company Number: JP-PFIZER INC-2020147043

PATIENT
  Age: 87 Year
  Sex: Male
  Weight: 65 kg

DRUGS (22)
  1. OMEPRAZOLE. [Concomitant]
     Active Substance: OMEPRAZOLE
     Dosage: UNK
  2. CARVEDILOL. [Concomitant]
     Active Substance: CARVEDILOL
     Dosage: 10 MG, UNK
  3. XTANDI [Concomitant]
     Active Substance: ENZALUTAMIDE
     Dosage: 160 MG, UNK
     Dates: start: 201901
  4. PREDNISOLONE. [Concomitant]
     Active Substance: PREDNISOLONE
     Dosage: 10 MG, UNK
  5. RUPAFIN [Concomitant]
     Active Substance: RUPATADINE FUMARATE
     Dosage: UNK
  6. ATORVASTATIN [Concomitant]
     Active Substance: ATORVASTATIN
     Dosage: UNK
  7. ELIQUIS [Concomitant]
     Active Substance: APIXABAN
     Dosage: UNK
  8. OLOPATADINE. [Concomitant]
     Active Substance: OLOPATADINE
     Dosage: UNK
  9. BETANIS [Concomitant]
     Active Substance: MIRABEGRON
     Indication: HYPERTONIC BLADDER
     Dosage: 25 MG, 1X/DAY
     Route: 048
     Dates: start: 20190107
  10. URIEF [Concomitant]
     Active Substance: SILODOSIN
     Dosage: UNK
     Route: 048
  11. SILODOSIN. [Suspect]
     Active Substance: SILODOSIN
     Indication: BENIGN PROSTATIC HYPERPLASIA
     Dosage: 4 MG, 1X/DAY
     Route: 048
     Dates: start: 201809
  12. CARVEDILOL. [Concomitant]
     Active Substance: CARVEDILOL
     Dosage: 20 MG, UNK
  13. FUROSEMIDE. [Concomitant]
     Active Substance: FUROSEMIDE
     Dosage: UNK
  14. VALSARTAN. [Concomitant]
     Active Substance: VALSARTAN
     Dosage: UNK
  15. LEUPLIN [Concomitant]
     Active Substance: LEUPROLIDE ACETATE
     Dosage: UNK
  16. PRALIA [Concomitant]
     Active Substance: DENOSUMAB
     Dosage: UNK
  17. LYRICA [Suspect]
     Active Substance: PREGABALIN
     Indication: PAIN
     Dosage: 75 MG, 2X/DAY (AFTER BREAKFAST AND BEFORE BEDTIME)
     Route: 048
     Dates: start: 20190406, end: 20190407
  18. XTANDI [Concomitant]
     Active Substance: ENZALUTAMIDE
     Indication: PROSTATE CANCER
     Dosage: 120 MG, 1X/DAY
     Route: 048
     Dates: start: 20190122
  19. CEFCAPENE PIVOXIL HYDROCHLORIDE [Concomitant]
     Active Substance: CEFCAPENE PIVOXIL HYDROCHLORIDE
     Indication: INFECTION
     Dosage: 100 MG, 2X/DAY (AFTER BREAKFAST AND SUPPER)
     Route: 048
     Dates: start: 20190406, end: 20190407
  20. SPIRONOLACTONE. [Concomitant]
     Active Substance: SPIRONOLACTONE
     Dosage: UNK
  21. NIFEDIPINE. [Concomitant]
     Active Substance: NIFEDIPINE
     Dosage: UNK
  22. PREDNISOLONE. [Concomitant]
     Active Substance: PREDNISOLONE
     Dosage: 5 MG, UNK
     Dates: start: 2019

REACTIONS (5)
  - Drug hypersensitivity [Unknown]
  - Erythema [Unknown]
  - Pyrexia [Unknown]
  - Rash [Recovering/Resolving]
  - Pruritus [Unknown]

NARRATIVE: CASE EVENT DATE: 2019
